FAERS Safety Report 9823281 (Version 1)
Quarter: 2014Q1

REPORT INFORMATION
  Report Type: Spontaneous
  Country: US (occurrence: US)
  Receive Date: 20140116
  Receipt Date: 20140116
  Transmission Date: 20141002
  Serious: Yes (Other)
  Sender: FDA-Public Use
  Company Number: US-NAPPMUNDI-USA-2014-0110128

PATIENT
  Sex: Male

DRUGS (1)
  1. DILAUDID INJECTION [Suspect]
     Indication: PAIN
     Dosage: UNK, SINGLE
     Route: 042
     Dates: start: 20130121, end: 20130121

REACTIONS (4)
  - Convulsion [Recovered/Resolved]
  - Motor dysfunction [Not Recovered/Not Resolved]
  - Dyskinesia [Not Recovered/Not Resolved]
  - Anxiety [Recovered/Resolved]
